FAERS Safety Report 4976922-X (Version None)
Quarter: 2006Q2

REPORT INFORMATION
  Report Type: 
  Country: None (occurrence: None)
  Receive Date: 20060419
  Receipt Date: 20060315
  Transmission Date: 20061013
  Serious: Yes (Death, Hospitalization, Other)
  Sender: FDA-Public Use
  Company Number: US-BRISTOL-MYERS SQUIBB COMPANY-13315551

PATIENT
  Age: 89 Year
  Sex: Male

DRUGS (13)
  1. TEQUIN [Suspect]
     Indication: OEDEMA PERIPHERAL
     Route: 048
     Dates: start: 20041217, end: 20041221
  2. TEQUIN [Suspect]
     Indication: PULMONARY OEDEMA
     Route: 048
     Dates: start: 20041217, end: 20041221
  3. LASIX [Suspect]
     Indication: OEDEMA PERIPHERAL
     Dates: start: 20041217
  4. LASIX [Suspect]
     Indication: PULMONARY OEDEMA
     Dates: start: 20041217
  5. CLARINEX [Concomitant]
  6. SYNTHROID [Concomitant]
  7. DETROL LA [Concomitant]
  8. REGLAN [Concomitant]
  9. PLETAL [Concomitant]
  10. NIASPAN [Concomitant]
  11. AMARYL [Concomitant]
     Indication: DIABETES MELLITUS
  12. ACTOS [Concomitant]
     Indication: DIABETES MELLITUS
  13. PRILOSEC [Concomitant]

REACTIONS (4)
  - HYPERGLYCAEMIA [None]
  - HYPERGLYCAEMIC HYPEROSMOLAR NONKETOTIC SYNDROME [None]
  - MYOCARDIAL INFARCTION [None]
  - RENAL FAILURE [None]
